FAERS Safety Report 10042633 (Version 2)
Quarter: 2014Q2

REPORT INFORMATION
  Report Type: Report from Study
  Country: US (occurrence: US)
  Receive Date: 20140327
  Receipt Date: 20140521
  Transmission Date: 20141212
  Serious: Yes (Hospitalization)
  Sender: FDA-Public Use
  Company Number: PHEH2014US005930

PATIENT
  Age: 41 Year
  Sex: Female
  Weight: 81.2 kg

DRUGS (5)
  1. CLOZARIL [Suspect]
     Indication: BIPOLAR DISORDER
     Dosage: 125 MG, QHS
  2. COGENTIN [Concomitant]
     Dosage: 2 MG QHS
  3. PAROXETINE [Concomitant]
     Dosage: 10 MG, QHS
  4. DIVALPROEX [Concomitant]
     Dosage: 500 MG, QHS
     Route: 048
  5. METOPROLOL TARTRATE [Concomitant]
     Dosage: 25 MG, BID
     Route: 048

REACTIONS (5)
  - Acute respiratory distress syndrome [Unknown]
  - Procedural complication [Recovered/Resolved]
  - Renal failure acute [Unknown]
  - Alanine aminotransferase increased [Unknown]
  - Aspartate aminotransferase increased [Unknown]
